FAERS Safety Report 23448162 (Version 5)
Quarter: 2025Q1

REPORT INFORMATION
  Report Type: Other
  Country: US (occurrence: US)
  Receive Date: 20240126
  Receipt Date: 20250115
  Transmission Date: 20250408
  Serious: No
  Sender: TRAVERE THERAPEUTICS
  Company Number: US-TRAVERE-2023TVT00893

PATIENT
  Age: 56 Year
  Sex: Male

DRUGS (5)
  1. FILSPARI [Suspect]
     Active Substance: SPARSENTAN
     Indication: Haematuria
     Route: 048
     Dates: start: 202304
  2. FILSPARI [Suspect]
     Active Substance: SPARSENTAN
     Indication: Chronic kidney disease
  3. FILSPARI [Suspect]
     Active Substance: SPARSENTAN
     Indication: Proteinuria
  4. FILSPARI [Suspect]
     Active Substance: SPARSENTAN
     Indication: IgA nephropathy
  5. HUMIRA [Concomitant]
     Active Substance: ADALIMUMAB

REACTIONS (9)
  - Feeling hot [Unknown]
  - Erythema [Unknown]
  - Pruritus [Unknown]
  - Hypersensitivity [Unknown]
  - Influenza [Unknown]
  - Insomnia [Unknown]
  - Nightmare [Unknown]
  - Joint swelling [None]
  - Arthralgia [Recovering/Resolving]
